FAERS Safety Report 23369760 (Version 1)
Quarter: 2024Q1

REPORT INFORMATION
  Report Type: Spontaneous
  Country: US (occurrence: None)
  Receive Date: 20240104
  Receipt Date: 20240104
  Transmission Date: 20240410
  Serious: Yes (Other)
  Sender: FDA-Public Use
  Company Number: None

PATIENT
  Age: 16 Month
  Sex: Male
  Weight: 12.2 kg

DRUGS (3)
  1. LEVETIRACETAM [Suspect]
     Active Substance: LEVETIRACETAM
     Indication: Seizure
     Dosage: FREQUENCY : TWICE A DAY;?
     Dates: start: 20231024, end: 20231207
  2. SULFAMETHOXAZOLE\TRIMETHOPRIM [Concomitant]
     Active Substance: SULFAMETHOXAZOLE\TRIMETHOPRIM
     Dates: start: 20231204, end: 20231205
  3. ACNS0334 protocol (included vincristine, cisplatin, cyclophos, etoposi [Concomitant]
     Dates: start: 20231130, end: 20231202

REACTIONS (1)
  - Drug eruption [None]

NARRATIVE: CASE EVENT DATE: 20231204
